FAERS Safety Report 10108697 (Version 1)
Quarter: 2014Q2

REPORT INFORMATION
  Report Type: Spontaneous
  Country: GB (occurrence: GB)
  Receive Date: 20140425
  Receipt Date: 20140425
  Transmission Date: 20141212
  Serious: Yes (Congenital Anomaly, Other)
  Sender: FDA-Public Use
  Company Number: GB-ACCORD-023223

PATIENT
  Sex: Male

DRUGS (6)
  1. METFORMIN [Concomitant]
     Route: 050
  2. RITUXIMAB [Concomitant]
     Route: 050
  3. OMEPRAZOLE [Concomitant]
     Route: 050
  4. RAMIPRIL [Concomitant]
     Route: 050
  5. CALCIUM + VITAMIN D [Concomitant]
     Route: 050
  6. METHOTREXATE [Suspect]
     Indication: PRODUCT USED FOR UNKNOWN INDICATION
     Route: 050

REACTIONS (3)
  - Premature baby [Unknown]
  - Heart disease congenital [Not Recovered/Not Resolved]
  - Exposure via father [Unknown]
